FAERS Safety Report 7496504-8 (Version None)
Quarter: 2011Q2

REPORT INFORMATION
  Report Type: 
  Country: None (occurrence: None)
  Receive Date: 20110523
  Receipt Date: 20110518
  Transmission Date: 20111010
  Serious: Yes (Other)
  Sender: FDA-Public Use
  Company Number: CO-ROCHE-777853

PATIENT
  Sex: Female

DRUGS (3)
  1. ACTEMRA [Suspect]
     Indication: RHEUMATOID ARTHRITIS
     Route: 042
     Dates: start: 20100113
  2. DICLOFENAC SODIUM [Concomitant]
     Indication: PAIN
     Dosage: FREQUENCY: PRN
     Route: 048
  3. TRAMADOL HCL [Concomitant]
     Indication: PAIN
     Dosage: FREQUENCY: PRN
     Route: 048

REACTIONS (1)
  - ARTHRALGIA [None]
